FAERS Safety Report 15635503 (Version 1)
Quarter: 2018Q4

REPORT INFORMATION
  Report Type: Report from Study
  Country: None (occurrence: CA)
  Receive Date: 20181120
  Receipt Date: 20181120
  Transmission Date: 20190205
  Serious: Yes (Hospitalization)
  Sender: FDA-Public Use
  Company Number: CA-ABBVIE-18K-028-2559172-00

PATIENT
  Age: 85 Year
  Sex: Female

DRUGS (1)
  1. HUMIRA [Suspect]
     Active Substance: ADALIMUMAB
     Indication: CROHN^S DISEASE
     Route: 058
     Dates: start: 20111209

REACTIONS (3)
  - Gastric disorder [Not Recovered/Not Resolved]
  - Hypophagia [Not Recovered/Not Resolved]
  - Neoplasm malignant [Unknown]

NARRATIVE: CASE EVENT DATE: 20181108
